FAERS Safety Report 9745501 (Version 2)
Quarter: 2013Q4

REPORT INFORMATION
  Report Type: Spontaneous
  Country: US (occurrence: US)
  Receive Date: 20131211
  Receipt Date: 20131211
  Transmission Date: 20140711
  Serious: No
  Sender: FDA-Public Use
  Company Number: US-BIOGENIDEC-2013BI089262

PATIENT
  Age: 60 Year
  Sex: Female
  Weight: 73 kg

DRUGS (8)
  1. TECFIDERA [Suspect]
     Indication: MULTIPLE SCLEROSIS
     Route: 048
     Dates: start: 20130907
  2. TECFIDERA [Suspect]
     Indication: MULTIPLE SCLEROSIS
     Route: 048
     Dates: start: 20130914
  3. TECFIDERA [Suspect]
     Indication: MULTIPLE SCLEROSIS
     Route: 048
  4. CLONAZEPAM [Concomitant]
  5. GARCINIA CAM [Concomitant]
  6. LEXAPRO [Concomitant]
  7. MEGAVITE [Concomitant]
  8. VITAMIN D [Concomitant]

REACTIONS (5)
  - Hot flush [Recovered/Resolved]
  - Pruritus [Recovered/Resolved]
  - Diarrhoea [Recovered/Resolved]
  - Underdose [Unknown]
  - Overdose [Unknown]
